FAERS Safety Report 5213769-3 (Version None)
Quarter: 2007Q1

REPORT INFORMATION
  Report Type: 
  Country: None (occurrence: None)
  Receive Date: 20070119
  Receipt Date: 20070109
  Transmission Date: 20070707
  Serious: Yes (Death, Hospitalization)
  Sender: FDA-Public Use
  Company Number: JP-PFIZER INC-2006141311

PATIENT
  Age: 78 Year
  Sex: Female

DRUGS (2)
  1. UNASYN [Suspect]
     Indication: PNEUMONIA
     Dosage: DAILY DOSE:6GRAM
     Route: 042
     Dates: start: 20061028, end: 20061030
  2. GASTER [Concomitant]
     Route: 048

REACTIONS (2)
  - LIVER DISORDER [None]
  - PNEUMONIA [None]
